FAERS Safety Report 4289270-0 (Version None)
Quarter: 2004Q1

REPORT INFORMATION
  Report Type: 
  Country: None (occurrence: None)
  Receive Date: 20040203
  Receipt Date: 20000726
  Transmission Date: 20041129
  Serious: Yes (Other)
  Sender: FDA-Public Use
  Company Number: 2000-094

PATIENT
  Age: 36 Year
  Sex: Female
  Weight: 81.6475 kg

DRUGS (2)
  1. DORYX [Suspect]
     Indication: ACNE
     Dosage: 100 MG 1 QHS PO
     Route: 048
     Dates: start: 20000131, end: 20000717
  2. CLARITIN [Concomitant]

REACTIONS (1)
  - OESOPHAGEAL ULCER [None]
